FAERS Safety Report 6245570-6 (Version None)
Quarter: 2009Q2

REPORT INFORMATION
  Report Type: 
  Country: None (occurrence: None)
  Receive Date: 20090625
  Receipt Date: 20090615
  Transmission Date: 20091009
  Serious: Yes (Life-Threatening, Other)
  Sender: FDA-Public Use
  Company Number: LB-TYCO HEALTHCARE/MALLINCKRODT-T200901204

PATIENT
  Age: 62 Year

DRUGS (1)
  1. OPTIRAY 350 [Suspect]
     Indication: CATHETERISATION CARDIAC
     Dosage: 100 ML, SINGLE
     Route: 013
     Dates: start: 20090608, end: 20090608

REACTIONS (2)
  - ANAPHYLACTIC SHOCK [None]
  - BRADYCARDIA [None]
